FAERS Safety Report 21314331 (Version 2)
Quarter: 2023Q2

REPORT INFORMATION
  Report Type: Spontaneous
  Country: US (occurrence: None)
  Receive Date: 20220909
  Receipt Date: 20230623
  Transmission Date: 20230721
  Serious: Yes (Hospitalization)
  Sender: FDA-Public Use
  Company Number: US-FARMAPROD-202110-1795

PATIENT
  Age: 47 Year
  Sex: Female
  Weight: 81.72 kg

DRUGS (29)
  1. OXERVATE [Suspect]
     Active Substance: CENEGERMIN-BKBJ
     Indication: Neurotrophic keratopathy
     Route: 047
     Dates: start: 20201214, end: 20210208
  2. OXERVATE [Suspect]
     Active Substance: CENEGERMIN-BKBJ
     Route: 047
     Dates: start: 20210309, end: 20210504
  3. OXERVATE [Suspect]
     Active Substance: CENEGERMIN-BKBJ
     Route: 047
     Dates: start: 20210618, end: 20210813
  4. OXERVATE [Suspect]
     Active Substance: CENEGERMIN-BKBJ
     Route: 047
     Dates: start: 20210813, end: 20211008
  5. OXERVATE [Suspect]
     Active Substance: CENEGERMIN-BKBJ
     Route: 047
     Dates: start: 20211008, end: 20211203
  6. OXERVATE [Suspect]
     Active Substance: CENEGERMIN-BKBJ
     Route: 047
     Dates: start: 20211203, end: 20220124
  7. OXERVATE [Suspect]
     Active Substance: CENEGERMIN-BKBJ
     Route: 047
     Dates: start: 20221107, end: 20230102
  8. OXERVATE [Suspect]
     Active Substance: CENEGERMIN-BKBJ
     Route: 047
     Dates: start: 20230103, end: 20230326
  9. OXERVATE [Suspect]
     Active Substance: CENEGERMIN-BKBJ
     Route: 047
     Dates: start: 20230327
  10. VITAMIN D2 [Concomitant]
     Active Substance: ERGOCALCIFEROL
  11. HYDROXYZINE HYDROCHLORIDE [Concomitant]
     Active Substance: HYDROXYZINE HYDROCHLORIDE
  12. PREDNISONE [Concomitant]
     Active Substance: PREDNISONE
  13. CARBAMAZEPINE [Concomitant]
     Active Substance: CARBAMAZEPINE
  14. TYRVAYA [Concomitant]
     Active Substance: VARENICLINE TARTRATE
     Dosage: 0.03 SPRAY METERED, NON AEROSOL.
  15. GABAPENTIN [Concomitant]
     Active Substance: GABAPENTIN
  16. EPIPEN [Concomitant]
     Active Substance: EPINEPHRINE
     Dosage: 2-PAK 0.3 MG / 0.3 AUTO INJECTOR
  17. DIETARY SUPPLEMENT [Concomitant]
     Active Substance: DIETARY SUPPLEMENT
  18. CEREFOLIN NAC [Concomitant]
     Dosage: 6-600-2 MG
  19. VITAMIN D3 [Concomitant]
     Active Substance: CHOLECALCIFEROL
  20. GLUTATHIONE REDUCED [Concomitant]
  21. CLINDAMYCIN HYDROCHLORIDE [Concomitant]
     Active Substance: CLINDAMYCIN HYDROCHLORIDE
  22. CARBAMAZEPINE [Concomitant]
     Active Substance: CARBAMAZEPINE
  23. MAGNESIUM [Concomitant]
     Active Substance: MAGNESIUM
  24. CALCIUM [Concomitant]
     Active Substance: CALCIUM
  25. OMEGA MONOPURE DHA EC [Concomitant]
  26. ZINC [Concomitant]
     Active Substance: ZINC
  27. NEURONTIN [Concomitant]
     Active Substance: GABAPENTIN
  28. VITAMIN C [Concomitant]
     Active Substance: ASCORBIC ACID
  29. BACLOFEN [Concomitant]
     Active Substance: BACLOFEN

REACTIONS (7)
  - Pulmonary embolism [Recovered/Resolved]
  - Menstruation irregular [Unknown]
  - COVID-19 [Unknown]
  - Gastrooesophageal reflux disease [Unknown]
  - Hypersensitivity [Unknown]
  - Eye pain [Unknown]
  - Therapy interrupted [Unknown]

NARRATIVE: CASE EVENT DATE: 20230427
